FAERS Safety Report 10102898 (Version 1)
Quarter: 2014Q2

REPORT INFORMATION
  Report Type: Spontaneous
  Country: GB (occurrence: GB)
  Receive Date: 20140424
  Receipt Date: 20140424
  Transmission Date: 20141212
  Serious: Yes (Hospitalization)
  Sender: FDA-Public Use
  Company Number: GB-PFIZER INC-2014110001

PATIENT
  Age: 33 Year
  Sex: 0

DRUGS (8)
  1. CHAMPIX [Suspect]
     Indication: SMOKING CESSATION THERAPY
     Dosage: 1 MG AND 0.5 MG TABLETS, UNK
     Route: 048
     Dates: start: 20140317, end: 20140404
  2. AMITRIPTYLINE [Concomitant]
     Dosage: UNK
  3. BECLOMETASONE DIPROPIONATE [Concomitant]
     Dosage: UNK
  4. FLUOXETINE [Concomitant]
     Dosage: UNK
  5. HYOSCINE BUTYLBROMIDE [Concomitant]
     Dosage: UNK
  6. SALBUTAMOL [Concomitant]
     Dosage: UNK
  7. SALMETEROL [Concomitant]
     Dosage: UNK
  8. THIAMINE [Concomitant]
     Dosage: UNK

REACTIONS (3)
  - Suicidal ideation [Recovering/Resolving]
  - Intentional self-injury [Unknown]
  - Mental disorder [Unknown]
